FAERS Safety Report 9223419 (Version 2)
Quarter: 2013Q3

REPORT INFORMATION
  Report Type: Spontaneous
  Country: US (occurrence: US)
  Receive Date: 20130410
  Receipt Date: 20130924
  Transmission Date: 20140515
  Serious: No
  Sender: FDA-Public Use
  Company Number: US-009507513-1304USA004504

PATIENT
  Sex: Female
  Weight: 58.5 kg

DRUGS (2)
  1. DR. SCHOLLS CALLUS REMOVERS [Suspect]
     Indication: HYPERKERATOSIS
     Dosage: UNK, ONCE
     Route: 061
     Dates: start: 20120819
  2. LEVOXYL [Concomitant]
     Indication: HYPOTHYROIDISM
     Dosage: UNK, UNKNOWN

REACTIONS (6)
  - Application site burn [Recovered/Resolved]
  - Skin lesion [Unknown]
  - Weight bearing difficulty [Unknown]
  - Burning sensation [Recovered/Resolved]
  - Application site erythema [Recovered/Resolved]
  - Skin discolouration [Recovered/Resolved]
